FAERS Safety Report 4416658-7 (Version None)
Quarter: 2004Q3

REPORT INFORMATION
  Report Type: 
  Country: None (occurrence: None)
  Receive Date: 20040802
  Receipt Date: 20040726
  Transmission Date: 20050211
  Serious: Yes (Hospitalization)
  Sender: FDA-Public Use
  Company Number: 200413487BCC

PATIENT
  Age: 31 Year
  Sex: Female
  Weight: 49.8957 kg

DRUGS (1)
  1. MILK OF MAGNESIA TAB [Suspect]
     Indication: HYPERCHLORHYDRIA
     Dosage: 15 ML, ONCE, ORAL
     Route: 048
     Dates: start: 20040712

REACTIONS (4)
  - DYSPEPSIA [None]
  - HEART RATE INCREASED [None]
  - HYPERCHLORHYDRIA [None]
  - REFUSAL OF TREATMENT BY PATIENT [None]
